FAERS Safety Report 9305025 (Version 1)
Quarter: 2013Q2

REPORT INFORMATION
  Report Type: Spontaneous
  Country: US (occurrence: None)
  Receive Date: 20130522
  Receipt Date: 20130522
  Transmission Date: 20140414
  Serious: No
  Sender: FDA-Public Use
  Company Number: None

PATIENT
  Age: 53 Year
  Sex: Female
  Weight: 74.4 kg

DRUGS (3)
  1. MACRODANTIN [Suspect]
     Indication: URINARY TRACT INFECTION
     Dates: start: 20110804, end: 20110805
  2. SIMVASTATIN [Suspect]
     Indication: HYPERLIPIDAEMIA
     Dates: start: 20110707, end: 20110814
  3. PREDNISONE [Concomitant]

REACTIONS (2)
  - Drug-induced liver injury [None]
  - Hepatitis acute [None]
